FAERS Safety Report 7749820-6 (Version None)
Quarter: 2011Q3

REPORT INFORMATION
  Report Type: 
  Country: None (occurrence: None)
  Receive Date: 20110914
  Receipt Date: 20110830
  Transmission Date: 20111222
  Serious: No
  Sender: FDA-Public Use
  Company Number: US-BAYER-2011-082781

PATIENT
  Age: 58 Year
  Sex: Male
  Weight: 100 kg

DRUGS (9)
  1. ALEVE (CAPLET) [Suspect]
     Indication: PROCEDURAL PAIN
     Dosage: BOTTLE COUNT 50S, PROBABLY TAKING 6 A DAY BUT MAY HAVE TAKEN UP TO 9
     Route: 048
  2. CRESTOR [Concomitant]
  3. OXYCODONE HCL [Concomitant]
     Indication: PROCEDURAL PAIN
  4. METOPROLOL [Concomitant]
  5. RAMIPRIL [Concomitant]
  6. METFORMIN HCL [Concomitant]
  7. LYRICA [Concomitant]
  8. ZANTAC [Concomitant]
  9. PLAVIX [Concomitant]

REACTIONS (7)
  - SKIN SWELLING [None]
  - SKIN EXFOLIATION [None]
  - SKIN DISORDER [None]
  - HYPERSENSITIVITY [None]
  - SWELLING FACE [None]
  - EYE SWELLING [None]
  - RASH GENERALISED [None]
